FAERS Safety Report 22093841 (Version 1)
Quarter: 2023Q1

REPORT INFORMATION
  Report Type: Spontaneous
  Country: US (occurrence: None)
  Receive Date: 20230314
  Receipt Date: 20230314
  Transmission Date: 20230418
  Serious: No
  Sender: FDA-Public Use
  Company Number: None

PATIENT
  Age: 44 Year
  Sex: Female
  Weight: 64.8 kg

DRUGS (15)
  1. METHYLPHENIDATE [Suspect]
     Active Substance: METHYLPHENIDATE
     Indication: Attention deficit hyperactivity disorder
     Dates: start: 20230103, end: 20230314
  2. CITALOPRAM [Concomitant]
     Active Substance: CITALOPRAM HYDROBROMIDE
  3. SPIRIVA RESPIMAT [Concomitant]
     Active Substance: TIOTROPIUM BROMIDE
  4. AMITRIPTYLINE [Concomitant]
     Active Substance: AMITRIPTYLINE
  5. DILTIAZEM [Concomitant]
     Active Substance: DILTIAZEM
  6. GUANFACINE [Concomitant]
     Active Substance: GUANFACINE
  7. METHYLPHENIDATE [Concomitant]
     Active Substance: METHYLPHENIDATE
  8. NALTREXONE [Concomitant]
     Active Substance: NALTREXONE
  9. THIAMINE [Concomitant]
     Active Substance: THIAMINE
  10. ZYRTEC [Concomitant]
     Active Substance: CETIRIZINE HYDROCHLORIDE
  11. VITAMIN D [Concomitant]
     Active Substance: VITAMIN D NOS
  12. multivitamin with omega [Concomitant]
  13. VITAMIN B12 [Concomitant]
     Active Substance: CYANOCOBALAMIN
  14. D MANNOSE [Concomitant]
  15. VITAMIN C [Concomitant]
     Active Substance: ASCORBIC ACID

REACTIONS (7)
  - Product substitution issue [None]
  - Drug ineffective [None]
  - Anxiety [None]
  - Depression [None]
  - Crying [None]
  - Insurance issue [None]
  - Feeling abnormal [None]
